FAERS Safety Report 15866190 (Version 1)
Quarter: 2019Q1

REPORT INFORMATION
  Report Type: Spontaneous
  Country: US (occurrence: US)
  Receive Date: 20190125
  Receipt Date: 20190125
  Transmission Date: 20190417
  Serious: No
  Sender: FDA-Public Use
  Company Number: US-PFIZER INC-2019031603

PATIENT
  Age: 22 Year
  Sex: Male

DRUGS (2)
  1. SOMAVERT [Suspect]
     Active Substance: PEGVISOMANT
     Dosage: 10 MG, DAILY
  2. SOMAVERT [Suspect]
     Active Substance: PEGVISOMANT
     Indication: ALBRIGHT^S DISEASE
     Dosage: 30 MG, DAILY

REACTIONS (2)
  - Product use in unapproved indication [Unknown]
  - Insulin-like growth factor increased [Unknown]
